FAERS Safety Report 8828317 (Version 2)
Quarter: 2012Q4

REPORT INFORMATION
  Report Type: 
  Country: US (occurrence: US)
  Receive Date: 20121005
  Receipt Date: 20121105
  Transmission Date: 20130627
  Serious: No
  Sender: FDA-Public Use
  Company Number: US-PFIZER INC-2012246229

PATIENT
  Sex: Female

DRUGS (12)
  1. METOPROLOL TARTRATE [Suspect]
     Indication: BLOOD PRESSURE HIGH
     Dosage: 50 mg, daily
  2. LYRICA [Interacting]
     Indication: FIBROMYALGIA
     Dosage: 150 mg, 2x/day
  3. LYRICA [Interacting]
     Dosage: 150 mg, daily
  4. LYRICA [Interacting]
     Dosage: 150 mg, UNK
     Dates: end: 201208
  5. GABAPENTIN [Suspect]
     Indication: FIBROMYALGIA
     Dosage: UNK
  6. FOSAMAX [Suspect]
     Indication: BONE DISORDER
     Dosage: UNK
  7. EVISTA [Interacting]
     Indication: BONE DISORDER
     Dosage: UNK
  8. TRIAMTERENE HYDROCHLOROTHIAZIDE [Suspect]
     Indication: BLOOD PRESSURE HIGH
     Dosage: [triamterene 37.5mg] /[hydrochlorothiazide 25mg], daily
  9. SIMVASTATIN [Concomitant]
     Indication: HIGH CHOLESTEROL
     Dosage: 40 mg, daily
  10. VICODIN [Concomitant]
     Indication: NECK PAIN
     Dosage: Unk, 3x/day
  11. VICODIN [Concomitant]
     Indication: BACK PAIN
  12. VICODIN [Concomitant]
     Indication: PAIN IN SPINE

REACTIONS (8)
  - Drug ineffective [Unknown]
  - Drug interaction [Unknown]
  - Anxiety [Unknown]
  - Chest pain [Unknown]
  - Throat irritation [Unknown]
  - Arthralgia [Unknown]
  - Insomnia [Not Recovered/Not Resolved]
  - Weight decreased [Unknown]
